FAERS Safety Report 7150849-X (Version None)
Quarter: 2010Q4

REPORT INFORMATION
  Report Type: 
  Country: None (occurrence: None)
  Receive Date: 20101210
  Receipt Date: 20101130
  Transmission Date: 20110411
  Serious: Yes (Hospitalization)
  Sender: FDA-Public Use
  Company Number: NL-ABBOTT-10P-114-0688764-00

PATIENT
  Sex: Female

DRUGS (4)
  1. HUMIRA [Suspect]
     Indication: CROHN'S DISEASE
     Dosage: ONE DOSE, ONCE PER TWO WEEKS
     Route: 058
  2. AZATHIOPRINE [Concomitant]
     Indication: CROHN'S DISEASE
     Route: 048
  3. ETHINYLESTRADIOL/LEVONORGESTREL TABLET [Concomitant]
     Indication: CONTRACEPTION
     Dosage: 30/150 MICROGRAM, ONE DOSE ONCE DAILY
     Route: 048
  4. FERROUS FUMARATE [Concomitant]
     Indication: IRON DEFICIENCY
     Dosage: 200MG; 2 DOSE ONCE DAILY

REACTIONS (1)
  - HOSPITALISATION [None]
